FAERS Safety Report 25698986 (Version 2)
Quarter: 2025Q3

REPORT INFORMATION
  Report Type: Report from Study
  Country: US (occurrence: US)
  Receive Date: 20250819
  Receipt Date: 20250917
  Transmission Date: 20251020
  Serious: Yes (Other)
  Sender: ACADIA PHARMACEUTICALS
  Company Number: US-ACADIA PHARMACEUTICALS INC.-ACA-2025-PIM-009257

PATIENT
  Sex: Male

DRUGS (14)
  1. NUPLAZID [Suspect]
     Active Substance: PIMAVANSERIN TARTRATE
     Indication: Parkinson^s disease psychosis
     Dosage: 34 MILLIGRAM, QD
     Route: 048
     Dates: start: 20250109
  2. CLONAZEPAM [Concomitant]
     Active Substance: CLONAZEPAM
  3. FLECAINIDE [Concomitant]
     Active Substance: FLECAINIDE
  4. FLUDROCORTISONE [Concomitant]
     Active Substance: FLUDROCORTISONE
  5. MELATONIN [Concomitant]
     Active Substance: MELATONIN
  6. MEMANTINE HYDROCHLORIDE [Concomitant]
     Active Substance: MEMANTINE HYDROCHLORIDE
  7. METOPROLOL TARTRATE [Concomitant]
     Active Substance: METOPROLOL TARTRATE
  8. VITAMINS NOS [Concomitant]
     Active Substance: VITAMINS
  9. SINEMET [Concomitant]
     Active Substance: CARBIDOPA\LEVODOPA
  10. STOOL SOFTENER (DOCUSATE) [Concomitant]
     Active Substance: DOCUSATE
  11. TYLENOL [Concomitant]
     Active Substance: ACETAMINOPHEN
  12. WARFARIN [Concomitant]
     Active Substance: WARFARIN
  13. GEMTESA [Concomitant]
     Active Substance: VIBEGRON
  14. OXYBUTYNIN [Concomitant]
     Active Substance: OXYBUTYNIN

REACTIONS (5)
  - Delirium [Not Recovered/Not Resolved]
  - Hallucination [Not Recovered/Not Resolved]
  - Urinary tract infection [Unknown]
  - Middle insomnia [Not Recovered/Not Resolved]
  - Confusional state [Unknown]
